FAERS Safety Report 4342706-9 (Version None)
Quarter: 2004Q2

REPORT INFORMATION
  Report Type: 
  Country: None (occurrence: None)
  Receive Date: 20040415
  Receipt Date: 20040331
  Transmission Date: 20050107
  Serious: Yes (Hospitalization)
  Sender: FDA-Public Use
  Company Number: 160012

PATIENT
  Age: 55 Year
  Sex: Female
  Weight: 56.246 kg

DRUGS (12)
  1. AVONEX [Suspect]
     Indication: MULTIPLE SCLEROSIS
     Dosage: 30 MCG QW IM
     Route: 030
     Dates: start: 19970101
  2. DIAZEPAM [Concomitant]
  3. MECLIZINE [Concomitant]
  4. COLACE [Concomitant]
  5. LOVENOX [Concomitant]
  6. FESO4 [Concomitant]
  7. COMBIVENT [Concomitant]
  8. NICODERM [Concomitant]
  9. PREDNISONE [Concomitant]
  10. TYLENOL (CAPLET) [Concomitant]
  11. DULCOLAX [Concomitant]
  12. DEMEROL [Concomitant]

REACTIONS (6)
  - DECUBITUS ULCER [None]
  - FAILURE OF IMPLANT [None]
  - FALL [None]
  - HIP FRACTURE [None]
  - INFLUENZA [None]
  - STAPHYLOCOCCAL INFECTION [None]
